FAERS Safety Report 26167823 (Version 1)
Quarter: 2025Q4

REPORT INFORMATION
  Report Type: Spontaneous
  Country: AU (occurrence: AU)
  Receive Date: 20251217
  Receipt Date: 20251217
  Transmission Date: 20260118
  Serious: Yes (Other)
  Sender: BAUSCH AND LOMB
  Company Number: AU-BAUSCHBL-2025BNL033565

PATIENT
  Age: 65 Year
  Sex: Male

DRUGS (4)
  1. PREDNISOLONE SODIUM PHOSPHATE [Suspect]
     Active Substance: PREDNISOLONE SODIUM PHOSPHATE
     Indication: Product used for unknown indication
  2. EQUINE THYMOCYTE IMMUNE GLOBULIN [Suspect]
     Active Substance: EQUINE THYMOCYTE IMMUNE GLOBULIN
     Indication: Product used for unknown indication
  3. TACROLIMUS [Suspect]
     Active Substance: TACROLIMUS
     Indication: Product used for unknown indication
  4. APIXABAN [Concomitant]
     Active Substance: APIXABAN
     Indication: Product used for unknown indication

REACTIONS (3)
  - Nocardiosis [Unknown]
  - Muscle abscess [Unknown]
  - Lung consolidation [Unknown]
